FAERS Safety Report 9057197 (Version 1)
Quarter: 2013Q1

REPORT INFORMATION
  Report Type: Spontaneous
  Country: FR (occurrence: FR)
  Receive Date: 20130131
  Receipt Date: 20130131
  Transmission Date: 20140127
  Serious: Yes (Hospitalization)
  Sender: FDA-Public Use
  Company Number: FR-ROCHE-1185834

PATIENT
  Age: 43 Year
  Sex: Male

DRUGS (9)
  1. PEGASYS [Suspect]
     Indication: HEPATITIS C
     Route: 065
     Dates: start: 20121210, end: 20130106
  2. COPEGUS [Suspect]
     Indication: HEPATITIS C
     Route: 048
     Dates: start: 20121210, end: 20130106
  3. DAFALGAN [Concomitant]
     Dosage: FREQUENCY: IF REQUIRED
     Route: 065
  4. ARESTAL [Concomitant]
     Dosage: FREQUENCY: IF REQUIRED
     Route: 065
  5. INIPOMP [Concomitant]
     Dosage: FREQUENCY: DAILY
     Route: 065
  6. TIAPRIDAL [Concomitant]
  7. THERALENE (FRANCE) [Concomitant]
  8. AOTAL [Concomitant]
  9. SULFARLEM [Concomitant]

REACTIONS (3)
  - Pancytopenia [Recovered/Resolved]
  - Gingival bleeding [Recovered/Resolved]
  - Purpura [Recovered/Resolved]
